FAERS Safety Report 26191805 (Version 1)
Quarter: 2025Q4

REPORT INFORMATION
  Report Type: Spontaneous
  Country: US (occurrence: US)
  Receive Date: 20251223
  Receipt Date: 20251223
  Transmission Date: 20260118
  Serious: No
  Sender: AMGEN
  Company Number: US-AMGEN-USASP2025252537

PATIENT
  Sex: Female

DRUGS (1)
  1. IMDELLTRA [Suspect]
     Active Substance: TARLATAMAB-DLLE
     Indication: Neuroendocrine tumour of the lung
     Dosage: UNK, STANDARD
     Route: 065

REACTIONS (2)
  - Platelet count decreased [Unknown]
  - Off label use [Unknown]
